FAERS Safety Report 9225147 (Version 1)
Quarter: 2013Q2

REPORT INFORMATION
  Report Type: Spontaneous
  Country: US (occurrence: None)
  Receive Date: 20130410
  Receipt Date: 20130410
  Transmission Date: 20140414
  Serious: Yes (Life-Threatening, Hospitalization)
  Sender: FDA-Public Use
  Company Number: None

PATIENT
  Age: 56 Year
  Sex: Female
  Weight: 90.72 kg

DRUGS (13)
  1. XARELTO [Suspect]
     Route: 048
     Dates: start: 20130402, end: 20130408
  2. LEVOTHYROXINE [Concomitant]
  3. TRAZODONE [Concomitant]
  4. KLONOPIN [Concomitant]
  5. KDUR [Concomitant]
  6. LEXAPRO [Concomitant]
  7. PROZAC [Concomitant]
  8. MIRALAX [Concomitant]
  9. ADVAIR [Concomitant]
  10. DEPAKOTE [Concomitant]
  11. SIMVASTATIN [Concomitant]
  12. AMITIZA [Concomitant]
  13. LASIX [Concomitant]

REACTIONS (4)
  - Asthenia [None]
  - Memory impairment [None]
  - Subdural haematoma [None]
  - Fall [None]
